FAERS Safety Report 11281415 (Version 1)
Quarter: 2015Q3

REPORT INFORMATION
  Report Type: Spontaneous
  Country: BR (occurrence: BR)
  Receive Date: 20150717
  Receipt Date: 20150717
  Transmission Date: 20151125
  Serious: Yes (Other)
  Sender: FDA-Public Use
  Company Number: BR-PFIZER INC-2015173069

PATIENT
  Age: 60 Year
  Sex: Female

DRUGS (4)
  1. AMITRIPTYLINE [Concomitant]
     Active Substance: AMITRIPTYLINE
     Indication: SLEEP DISORDER
     Dosage: UNK
     Dates: start: 2001
  2. CELEBRA [Suspect]
     Active Substance: CELECOXIB
     Indication: MUSCULOSKELETAL PAIN
     Dosage: 1 TABLET (AS REPORTED) EVERY 12 HOURS
     Dates: start: 20150518, end: 2015
  3. LOSARTAN. [Concomitant]
     Active Substance: LOSARTAN
     Indication: HYPERTENSION
  4. CELEBRA [Suspect]
     Active Substance: CELECOXIB
     Indication: LIMB DISCOMFORT

REACTIONS (1)
  - Helminthic infection [Recovered/Resolved]

NARRATIVE: CASE EVENT DATE: 20150518
